FAERS Safety Report 25366722 (Version 1)
Quarter: 2025Q2

REPORT INFORMATION
  Report Type: Spontaneous
  Country: CN (occurrence: CN)
  Receive Date: 20250528
  Receipt Date: 20250528
  Transmission Date: 20250717
  Serious: No
  Sender: ALKEM
  Company Number: CN-ALKEM LABORATORIES LIMITED-CN-ALKEM-2024-10713

PATIENT
  Age: 77 Year
  Sex: Male

DRUGS (2)
  1. NIMODIPINE [Suspect]
     Active Substance: NIMODIPINE
     Indication: Cerebral vasoconstriction
     Route: 013
  2. LIDOCAINE [Suspect]
     Active Substance: LIDOCAINE
     Indication: Cerebral vasoconstriction
     Route: 065

REACTIONS (1)
  - Drug ineffective [Unknown]
